FAERS Safety Report 6822402-6 (Version None)
Quarter: 2010Q3

REPORT INFORMATION
  Report Type: 
  Country: None (occurrence: None)
  Receive Date: 20100708
  Receipt Date: 20100628
  Transmission Date: 20110219
  Serious: Yes (Other)
  Sender: FDA-Public Use
  Company Number: PHHY2010CA15915

PATIENT
  Age: 15 Year

DRUGS (3)
  1. TEGRETOL [Suspect]
     Dosage: 200 MG/DAY
  2. TEGRETOL [Suspect]
     Dosage: 400 MG/DAY
  3. INSULIN [Concomitant]

REACTIONS (12)
  - ACUTE GENERALISED EXANTHEMATOUS PUSTULOSIS [None]
  - ALLERGIC KERATITIS [None]
  - DERMATITIS [None]
  - DRUG ERUPTION [None]
  - EOSINOPHILIA [None]
  - NEUTROPHIL FUNCTION DISORDER [None]
  - ORAL DISORDER [None]
  - PYREXIA [None]
  - RASH PUSTULAR [None]
  - SKIN EXFOLIATION [None]
  - SKIN LESION [None]
  - THROMBOCYTOPENIA [None]
